FAERS Safety Report 15247883 (Version 2)
Quarter: 2018Q3

REPORT INFORMATION
  Report Type: Spontaneous
  Country: US (occurrence: US)
  Receive Date: 20180807
  Receipt Date: 20180827
  Transmission Date: 20181010
  Serious: Yes (Death, Hospitalization, Other)
  Sender: FDA-Public Use
  Company Number: US-DRREDDYS-USA/USA/18/0102888

PATIENT
  Age: 70 Year
  Sex: Male

DRUGS (3)
  1. METHYLPREDNISOLONE. [Concomitant]
     Active Substance: METHYLPREDNISOLONE
     Indication: IMMUNOSUPPRESSION
     Route: 042
  2. SIROLIMUS. [Suspect]
     Active Substance: SIROLIMUS
     Indication: IMMUNOSUPPRESSION
     Route: 065
     Dates: start: 201701
  3. TACROLIMUS. [Suspect]
     Active Substance: TACROLIMUS
     Indication: IMMUNOSUPPRESSION
     Route: 065

REACTIONS (7)
  - Treatment failure [Unknown]
  - Pulmonary fibrosis [Unknown]
  - Haemoptysis [Unknown]
  - Tachycardia [Unknown]
  - Hypoxia [Unknown]
  - Death [Fatal]
  - Interstitial lung disease [Fatal]
